FAERS Safety Report 24155618 (Version 1)
Quarter: 2024Q3

REPORT INFORMATION
  Report Type: Spontaneous
  Country: GB (occurrence: GB)
  Receive Date: 20240731
  Receipt Date: 20240731
  Transmission Date: 20241016
  Serious: Yes (Other)
  Sender: DR REDDYS
  Company Number: None

PATIENT
  Sex: Male

DRUGS (1)
  1. FINASTERIDE [Suspect]
     Active Substance: FINASTERIDE
     Indication: Product used for unknown indication
     Route: 048

REACTIONS (6)
  - Depression [Unknown]
  - Erectile dysfunction [Unknown]
  - Blood testosterone decreased [Unknown]
  - Asthenia [Unknown]
  - Loss of libido [Unknown]
  - Libido decreased [Unknown]
